FAERS Safety Report 4859742-6 (Version None)
Quarter: 2005Q4

REPORT INFORMATION
  Report Type: 
  Country: None (occurrence: None)
  Receive Date: 20051219
  Receipt Date: 20040423
  Transmission Date: 20060501
  Serious: Yes (Death, Hospitalization)
  Sender: FDA-Public Use
  Company Number: AT-SANOFI-SYNTHELABO-F01200400856

PATIENT
  Sex: Female
  Weight: 72 kg

DRUGS (3)
  1. OXALIPLATIN [Suspect]
     Indication: BILE DUCT CANCER
     Dosage: 100 MG/M2 OVER 2 HOURS IV INFUSION ON DAY 2, Q2W
     Route: 042
     Dates: start: 20040408, end: 20040408
  2. GEMCITABINE [Suspect]
     Dosage: 1000 MG/M2 ON DAY 1, Q2W
     Route: 042
     Dates: start: 20040407, end: 20040407
  3. LASIX [Concomitant]
     Indication: OEDEMA PERIPHERAL
     Dosage: 40 MG
     Route: 048
     Dates: start: 20040204, end: 20040211

REACTIONS (4)
  - ASCITES [None]
  - DISEASE PROGRESSION [None]
  - DYSPNOEA [None]
  - GENERAL PHYSICAL HEALTH DETERIORATION [None]
